FAERS Safety Report 19992496 (Version 2)
Quarter: 2022Q1

REPORT INFORMATION
  Report Type: Spontaneous
  Country: IT (occurrence: IT)
  Receive Date: 20211026
  Receipt Date: 20220302
  Transmission Date: 20220423
  Serious: Yes (Other)
  Sender: FDA-Public Use
  Company Number: IT-CELLTRION INC.-2021IT014453

PATIENT

DRUGS (1)
  1. INFLIXIMAB [Suspect]
     Active Substance: INFLIXIMAB
     Indication: Takayasu^s arteritis
     Dosage: 5 MG/KG AT WEEKS 0, 2, AND 6, AND THEN EVERY 6 WEEKS
     Route: 042

REACTIONS (11)
  - Takayasu^s arteritis [Unknown]
  - Pneumonia bacterial [Unknown]
  - Herpes zoster reactivation [Unknown]
  - Herpes simplex reactivation [Unknown]
  - Diarrhoea [Unknown]
  - Urinary tract infection [Unknown]
  - Upper respiratory tract infection [Unknown]
  - Vulvovaginal candidiasis [Unknown]
  - Off label use [Unknown]
  - Drug effective for unapproved indication [Unknown]
  - Treatment delayed [Unknown]
